FAERS Safety Report 14279879 (Version 1)
Quarter: 2017Q4

REPORT INFORMATION
  Report Type: Spontaneous
  Country: US (occurrence: US)
  Receive Date: 20171212
  Receipt Date: 20171212
  Transmission Date: 20180321
  Serious: Yes (Death, Other)
  Sender: FDA-Public Use
  Company Number: US-SAOL THERAPEUTICS-2017SAO03459

PATIENT
  Sex: Female

DRUGS (1)
  1. BACLOFEN. [Suspect]
     Active Substance: BACLOFEN
     Indication: MUSCLE SPASTICITY
     Dosage: 615.1 ?G, \DAY
     Route: 037

REACTIONS (6)
  - Peritonitis [Fatal]
  - Chronic kidney disease [Fatal]
  - Ischaemia [Fatal]
  - Hypoxia [Fatal]
  - Enterococcal sepsis [Fatal]
  - Diabetes mellitus [Unknown]
